FAERS Safety Report 6181437-X (Version None)
Quarter: 2009Q2

REPORT INFORMATION
  Report Type: 
  Country: None (occurrence: None)
  Receive Date: 20090506
  Receipt Date: 20090430
  Transmission Date: 20091009
  Serious: Yes (Hospitalization)
  Sender: FDA-Public Use
  Company Number: US-B.I. PHARMACEUTICALS,INC./RIDGEFIELD-2009-BP-04120BP

PATIENT
  Age: 75 Year
  Sex: Male

DRUGS (13)
  1. FLOMAX [Suspect]
     Indication: BENIGN PROSTATIC HYPERPLASIA
     Dosage: .4MG
     Route: 048
     Dates: start: 20000101
  2. FLOMAX [Suspect]
     Indication: PROSTATOMEGALY
  3. LISINOPRIL [Concomitant]
     Indication: HYPERTENSION
     Dosage: 5MG
  4. TRICOR [Concomitant]
     Indication: BLOOD CHOLESTEROL INCREASED
     Dosage: 160MG
  5. OMEPRAZOLE [Concomitant]
     Indication: GASTROOESOPHAGEAL REFLUX DISEASE
     Dosage: 20MG
  6. METOPROLOL TARTRATE [Concomitant]
     Indication: HYPERTENSION
     Dosage: 100MG
  7. METOPROLOL TARTRATE [Concomitant]
     Indication: HEART RATE
  8. ASPIRIN [Concomitant]
     Indication: PROPHYLAXIS
     Dosage: 81MG
  9. ASPIRIN [Concomitant]
     Indication: CARDIAC DISORDER
  10. CLONAZEPAM [Concomitant]
     Indication: SLEEP APNOEA SYNDROME
     Dosage: 2MG
  11. LIPITOR [Concomitant]
     Indication: BLOOD CHOLESTEROL INCREASED
     Dosage: 40MG
  12. TIKOSYN [Concomitant]
     Indication: HEART RATE IRREGULAR
     Dosage: 1000MCG
  13. WARFARIN SODIUM [Concomitant]
     Indication: ANTICOAGULANT THERAPY
     Dosage: 7.5MCG

REACTIONS (5)
  - AORTIC ANEURYSM [None]
  - ATRIAL FIBRILLATION [None]
  - CATARACT [None]
  - CORONARY ARTERY OCCLUSION [None]
  - TYPE 2 DIABETES MELLITUS [None]
